FAERS Safety Report 14111362 (Version 1)
Quarter: 2017Q4

REPORT INFORMATION
  Report Type: Spontaneous
  Country: US (occurrence: US)
  Receive Date: 20171020
  Receipt Date: 20171020
  Transmission Date: 20180321
  Serious: No
  Sender: FDA-Public Use
  Company Number: US-SHIRE-US201725946

PATIENT
  Weight: 50 kg

DRUGS (1)
  1. GATTEX [Suspect]
     Active Substance: TEDUGLUTIDE\WATER
     Indication: MALABSORPTION
     Dosage: 0.25 ML, 1X/DAY:QD
     Route: 058

REACTIONS (4)
  - Pyrexia [Unknown]
  - Nausea [Unknown]
  - Headache [Unknown]
  - Chills [Unknown]
